FAERS Safety Report 8260199-6 (Version None)
Quarter: 2012Q2

REPORT INFORMATION
  Report Type: 
  Country: None (occurrence: None)
  Receive Date: 20120404
  Receipt Date: 20120403
  Transmission Date: 20120825
  Serious: Yes (Hospitalization)
  Sender: FDA-Public Use
  Company Number: US-BRACCO-007747

PATIENT
  Age: 53 Year
  Sex: Female

DRUGS (3)
  1. ISOVUE-370 [Suspect]
     Indication: COMPUTERISED TOMOGRAM ABDOMEN
     Route: 042
     Dates: start: 20120323, end: 20120323
  2. ISOVUE-370 [Suspect]
     Indication: RENAL DISORDER
     Route: 042
     Dates: start: 20120323, end: 20120323
  3. ASPIRIN [Concomitant]

REACTIONS (1)
  - LARYNGOSPASM [None]
